FAERS Safety Report 25178789 (Version 1)
Quarter: 2025Q2

REPORT INFORMATION
  Report Type: Spontaneous
  Country: US (occurrence: US)
  Receive Date: 20250409
  Receipt Date: 20250409
  Transmission Date: 20250716
  Serious: Yes (Life-Threatening, Other)
  Sender: DR REDDYS
  Company Number: US-DRL-USA-USA/2025/04/005228

PATIENT
  Age: 25 Year
  Sex: Male

DRUGS (3)
  1. LIOTHYRONINE [Suspect]
     Active Substance: LIOTHYRONINE
     Indication: Product used for unknown indication
  2. STANOZOLOL [Concomitant]
     Active Substance: STANOZOLOL
     Indication: Performance enhancing product use
  3. CLENBUTEROL [Concomitant]
     Active Substance: CLENBUTEROL
     Indication: Performance enhancing product use

REACTIONS (3)
  - Cardiac arrest [Unknown]
  - Cardiomyopathy [Unknown]
  - Hyperthyroidism [Unknown]
